FAERS Safety Report 7237533-9 (Version None)
Quarter: 2011Q1

REPORT INFORMATION
  Report Type: 
  Country: None (occurrence: None)
  Receive Date: 20110121
  Receipt Date: 20110113
  Transmission Date: 20110831
  Serious: Yes (Other)
  Sender: FDA-Public Use
  Company Number: BR-PFIZER INC-2011009481

PATIENT
  Age: 79 Year
  Sex: Female

DRUGS (4)
  1. SUSTRATE [Concomitant]
     Indication: CARDIAC DISORDER
     Dosage: UNK
  2. MONTELUKAST SODIUM [Concomitant]
     Indication: BRONCHITIS
     Dosage: UNK
  3. LYRICA [Suspect]
     Indication: PAIN
     Dosage: UNK
     Route: 048
     Dates: start: 20110106
  4. BALCOR [Concomitant]
     Indication: CARDIAC DISORDER
     Dosage: UNK

REACTIONS (2)
  - DYSSTASIA [None]
  - CONFUSIONAL STATE [None]
